FAERS Safety Report 5219208-0 (Version None)
Quarter: 2007Q1

REPORT INFORMATION
  Report Type: 
  Country: None (occurrence: None)
  Receive Date: 20070125
  Receipt Date: 20061205
  Transmission Date: 20070707
  Serious: Yes (Death, Hospitalization)
  Sender: FDA-Public Use
  Company Number: DE-MERCK-0611DEU00081

PATIENT
  Age: 59 Year
  Sex: Male

DRUGS (3)
  1. ZOCOR [Suspect]
     Indication: HYPERCHOLESTEROLAEMIA
     Route: 048
     Dates: start: 19960101, end: 19970101
  2. ZOCOR [Suspect]
     Route: 048
     Dates: start: 20010101, end: 20030301
  3. [THERAPY UNSPECIFIED] [Concomitant]
     Route: 065

REACTIONS (4)
  - DERMATOMYOSITIS [None]
  - MYOGLOBINAEMIA [None]
  - RENAL FAILURE [None]
  - RHABDOMYOLYSIS [None]
